FAERS Safety Report 9848806 (Version 1)
Quarter: 2014Q1

REPORT INFORMATION
  Report Type: Spontaneous
  Country: US (occurrence: None)
  Receive Date: 20140127
  Receipt Date: 20140127
  Transmission Date: 20141002
  Serious: Yes (Other)
  Sender: FDA-Public Use
  Company Number: None

PATIENT
  Age: 62 Year
  Sex: Male
  Weight: 70.76 kg

DRUGS (1)
  1. PICATO [Suspect]
     Dosage: LOTION AT BEDTIME, AT BEDTIME, APPLIED TO A SURFACE, USUALLY THE SKIN

REACTIONS (1)
  - Herpes zoster [None]
